FAERS Safety Report 24982243 (Version 2)
Quarter: 2025Q1

REPORT INFORMATION
  Report Type: Spontaneous
  Country: CA (occurrence: CA)
  Receive Date: 20250218
  Receipt Date: 20250305
  Transmission Date: 20250409
  Serious: Yes (Hospitalization)
  Sender: GLAXOSMITHKLINE
  Company Number: CA-GSK-CA2025AMR020202

PATIENT

DRUGS (12)
  1. VALACYCLOVIR HYDROCHLORIDE [Suspect]
     Active Substance: VALACYCLOVIR HYDROCHLORIDE
     Indication: Superinfection bacterial
     Route: 048
  2. VALACYCLOVIR HYDROCHLORIDE [Suspect]
     Active Substance: VALACYCLOVIR HYDROCHLORIDE
     Indication: Oral herpes
  3. ACYCLOVIR [Suspect]
     Active Substance: ACYCLOVIR
     Indication: Oral herpes
     Dosage: 10 MG/KG, TID
     Route: 042
  4. CIDOFOVIR [Suspect]
     Active Substance: CIDOFOVIR
     Indication: Oral herpes
     Route: 061
  5. CIDOFOVIR [Suspect]
     Active Substance: CIDOFOVIR
     Route: 042
  6. IMIQUIMOD [Suspect]
     Active Substance: IMIQUIMOD
     Indication: Oral herpes
     Route: 061
  7. ABACAVIR [Concomitant]
     Active Substance: ABACAVIR
     Indication: HIV infection
  8. CEPHALEXIN [Concomitant]
     Active Substance: CEPHALEXIN
     Indication: Antibiotic therapy
     Route: 048
  9. DOLUTEGRAVIR [Concomitant]
     Active Substance: DOLUTEGRAVIR
     Indication: HIV infection
  10. FOSCARNET SODIUM [Concomitant]
     Active Substance: FOSCARNET SODIUM
     Indication: Oral herpes
     Route: 061
  11. FOSCARNET SODIUM [Concomitant]
     Active Substance: FOSCARNET SODIUM
     Dosage: 90 MG/KG, BID
     Route: 042
  12. LAMIVUDINE [Concomitant]
     Active Substance: LAMIVUDINE
     Indication: HIV infection
     Route: 065

REACTIONS (2)
  - Drug ineffective [Unknown]
  - Drug resistance [Unknown]
